FAERS Safety Report 9931673 (Version 1)
Quarter: 2014Q1

REPORT INFORMATION
  Report Type: Spontaneous
  Country: US (occurrence: None)
  Receive Date: 20140227
  Receipt Date: 20140227
  Transmission Date: 20141002
  Serious: Yes (Life-Threatening, Hospitalization)
  Sender: FDA-Public Use
  Company Number: None

PATIENT
  Age: 65 Year
  Sex: Female
  Weight: 50.8 kg

DRUGS (4)
  1. LEVOFLOXACIN [Suspect]
     Indication: UPPER RESPIRATORY TRACT INFECTION
     Dosage: 1 PILL PER DAY, 1 DAILY, BY MOUTH
     Route: 048
     Dates: start: 20131211, end: 20131211
  2. TRIAMTERENE HCTZ [Concomitant]
  3. CALCIUM [Concomitant]
  4. VITAMIN D3 [Concomitant]

REACTIONS (5)
  - Tremor [None]
  - Syncope [None]
  - Hyperhidrosis [None]
  - Blood pressure decreased [None]
  - Loss of consciousness [None]
